FAERS Safety Report 7339226-6 (Version None)
Quarter: 2011Q1

REPORT INFORMATION
  Report Type: 
  Country: None (occurrence: None)
  Receive Date: 20110308
  Receipt Date: 20110304
  Transmission Date: 20110831
  Serious: Yes (Hospitalization)
  Sender: FDA-Public Use
  Company Number: BR-US-EMD SERONO, INC.-7045477

PATIENT
  Age: 37 Year
  Sex: Female

DRUGS (4)
  1. PURAN T4 [Concomitant]
  2. RETEMIC [Concomitant]
  3. REBIF [Suspect]
     Indication: RELAPSING-REMITTING MULTIPLE SCLEROSIS
     Dates: start: 20070601
  4. ESCITALOPRAM [Concomitant]

REACTIONS (2)
  - TINNITUS [None]
  - INTRACRANIAL ANEURYSM [None]
